FAERS Safety Report 4953456-X (Version None)
Quarter: 2006Q1

REPORT INFORMATION
  Report Type: 
  Country: None (occurrence: None)
  Receive Date: 20060324
  Receipt Date: 20060117
  Transmission Date: 20060701
  Serious: Yes (Death, Hospitalization)
  Sender: FDA-Public Use
  Company Number: 2006UW00833

PATIENT
  Age: 23684 Day
  Sex: Female
  Weight: 45.9 kg

DRUGS (6)
  1. IRESSA [Suspect]
     Indication: LUNG CANCER METASTATIC
     Route: 048
     Dates: start: 20040528, end: 20051217
  2. PROCRIT [Concomitant]
     Route: 058
  3. ZANTAC [Concomitant]
     Route: 048
  4. CIPRO [Concomitant]
  5. NEURONTIN [Concomitant]
  6. DURAGESIC-100 [Concomitant]
     Route: 062

REACTIONS (3)
  - ACUTE RESPIRATORY FAILURE [None]
  - PNEUMONIA [None]
  - PULMONARY HAEMORRHAGE [None]
